FAERS Safety Report 19200088 (Version 1)
Quarter: 2021Q2

REPORT INFORMATION
  Report Type: Spontaneous
  Country: KR (occurrence: KR)
  Receive Date: 20210430
  Receipt Date: 20210430
  Transmission Date: 20210717
  Serious: Yes (Other)
  Sender: FDA-Public Use
  Company Number: KR-GLAXOSMITHKLINE-KR2021APC093633

PATIENT
  Age: 23 Year
  Sex: Female

DRUGS (3)
  1. LAMICTAL [Suspect]
     Active Substance: LAMOTRIGINE
     Indication: BIPOLAR DISORDER
     Dosage: 12.5 MG
     Dates: start: 20210402
  2. VALEPTOL [Concomitant]
     Indication: PRODUCT USED FOR UNKNOWN INDICATION
     Dosage: UNK
     Dates: start: 20210402
  3. LAMICTAL [Suspect]
     Active Substance: LAMOTRIGINE
     Dosage: 25 MG
     Dates: start: 20210423, end: 20210424

REACTIONS (6)
  - Therapy interrupted [Unknown]
  - Pain in extremity [Unknown]
  - Rash [Unknown]
  - Pruritus [Unknown]
  - Product prescribing error [Unknown]
  - Pyrexia [Unknown]

NARRATIVE: CASE EVENT DATE: 20210424
